FAERS Safety Report 4901518-5 (Version None)
Quarter: 2006Q1

REPORT INFORMATION
  Report Type: 
  Country: None (occurrence: None)
  Receive Date: 20060202
  Receipt Date: 20060113
  Transmission Date: 20060701
  Serious: Yes (Death)
  Sender: FDA-Public Use
  Company Number: COT_0374_2006

PATIENT
  Age: 78 Year
  Sex: Male
  Weight: 79.3795 kg

DRUGS (13)
  1. VENTAVIS [Suspect]
     Indication: PULMONARY HYPERTENSION
     Dosage: 5 MCG 6XD IH
     Route: 055
     Dates: start: 20041005, end: 20051111
  2. VENTAVIS [Suspect]
     Indication: PULMONARY HYPERTENSION
     Dosage: 5 MCG 8XD  IH
     Route: 055
     Dates: start: 20051111
  3. SILDENAFIL [Concomitant]
  4. CENTRUM SILVER [Concomitant]
  5. FORADIL [Concomitant]
  6. ALLOPURINOL [Concomitant]
  7. LORATADINE [Concomitant]
  8. COMBIVENT [Concomitant]
  9. HYDRALAZINE [Concomitant]
  10. FLUOXETINE [Concomitant]
  11. DIOVAN [Concomitant]
  12. FLONASE [Concomitant]
  13. OXYGEN [Concomitant]

REACTIONS (3)
  - ACUTE CORONARY SYNDROME [None]
  - CYANOSIS [None]
  - LOSS OF CONSCIOUSNESS [None]
